FAERS Safety Report 23461199 (Version 1)
Quarter: 2024Q1

REPORT INFORMATION
  Report Type: Other
  Country: None (occurrence: CN)
  Receive Date: 20240131
  Receipt Date: 20240131
  Transmission Date: 20240410
  Serious: Yes (Other)
  Sender: FDA-Public Use
  Company Number: CN-Appco Pharma LLC-2152357

PATIENT
  Age: 31 Year
  Sex: Female

DRUGS (1)
  1. CHLORTHALIDONE [Suspect]
     Active Substance: CHLORTHALIDONE
     Indication: Diuretic therapy
     Route: 065

REACTIONS (2)
  - Choroidal effusion [Recovered/Resolved]
  - Myopia [Recovered/Resolved]
